FAERS Safety Report 4484892-6 (Version None)
Quarter: 2004Q3

REPORT INFORMATION
  Report Type: 
  Country: None (occurrence: None)
  Receive Date: 20040921
  Receipt Date: 20030905
  Transmission Date: 20050211
  Serious: Yes (Hospitalization)
  Sender: FDA-Public Use
  Company Number: 163-20785-03090189(0)

PATIENT
  Age: 44 Year
  Sex: Male
  Weight: 98.4 kg

DRUGS (6)
  1. THALOMID [Suspect]
     Indication: METASTATIC MALIGNANT MELANOMA
     Dosage: 200 MG, QD, ORAL
     Route: 048
     Dates: start: 20030721, end: 20030827
  2. TEMOZOLOMIDE (TEMOZOLOMIDE) [Suspect]
     Indication: METASTATIC MALIGNANT MELANOMA
     Dosage: DAILY, ORAL
     Route: 048
     Dates: start: 20030821, end: 20030828
  3. ALEVE [Concomitant]
  4. PREVACID [Concomitant]
  5. CORTIZONE CREME [Concomitant]
  6. ATIVAN [Concomitant]

REACTIONS (5)
  - DIZZINESS [None]
  - FEBRILE NEUTROPENIA [None]
  - HEPATIC ENZYME INCREASED [None]
  - ORTHOSTATIC HYPOTENSION [None]
  - SYNCOPE [None]
